FAERS Safety Report 6054912-6 (Version None)
Quarter: 2009Q1

REPORT INFORMATION
  Report Type: 
  Country: None (occurrence: None)
  Receive Date: 20090128
  Receipt Date: 20090121
  Transmission Date: 20090719
  Serious: Yes (Hospitalization)
  Sender: FDA-Public Use
  Company Number: PHBS2009TN00564

PATIENT
  Age: 15 Month
  Sex: Male
  Weight: 9 kg

DRUGS (4)
  1. CYCLOSPORINE [Suspect]
     Indication: BONE MARROW TRANSPLANT
     Dosage: UNK
  2. METHOTREXATE [Concomitant]
     Indication: PROPHYLAXIS AGAINST GRAFT VERSUS HOST DISEASE
     Dosage: UNK
  3. ATGAM [Concomitant]
  4. CYCLOPHOSPHAMIDE [Concomitant]
     Dosage: 200 MG/KG

REACTIONS (9)
  - COUGH [None]
  - DYSPNOEA [None]
  - HYPOXIA [None]
  - INFLUENZA [None]
  - LUNG INFILTRATION [None]
  - PULMONARY ALVEOLAR HAEMORRHAGE [None]
  - PYREXIA [None]
  - RHINITIS [None]
  - VOMITING [None]
